FAERS Safety Report 24722007 (Version 2)
Quarter: 2025Q2

REPORT INFORMATION
  Report Type: Report from Study
  Country: CO (occurrence: CO)
  Receive Date: 20241211
  Receipt Date: 20250609
  Transmission Date: 20250716
  Serious: Yes (Hospitalization)
  Sender: JOHNSON AND JOHNSON
  Company Number: CO-BAYER-2024A174162

PATIENT
  Age: 58 Year
  Sex: Female

DRUGS (2)
  1. VENTAVIS [Suspect]
     Active Substance: ILOPROST
     Indication: Pulmonary hypertension
     Dosage: 2 ML 6 INHALATION SESSIONS PER DAY
     Dates: start: 20170527, end: 20240815
  2. ADEMPAS [Concomitant]
     Active Substance: RIOCIGUAT
     Indication: Product used for unknown indication

REACTIONS (5)
  - Pulmonary congestion [Recovering/Resolving]
  - Cardiac disorder [Recovering/Resolving]
  - Gastritis [Recovering/Resolving]
  - Internal haemorrhage [Recovering/Resolving]
  - Incorrect route of product administration [Unknown]

NARRATIVE: CASE EVENT DATE: 20240911
